FAERS Safety Report 18747093 (Version 12)
Quarter: 2022Q3

REPORT INFORMATION
  Report Type: Report from Study
  Country: US (occurrence: US)
  Receive Date: 20210115
  Receipt Date: 20220712
  Transmission Date: 20221027
  Serious: Yes (Hospitalization, Other)
  Sender: FDA-Public Use
  Company Number: US-BOEHRINGERINGELHEIM-2020-BI-047178

PATIENT
  Age: 71 Year
  Sex: Male

DRUGS (2)
  1. OFEV [Suspect]
     Active Substance: NINTEDANIB
     Indication: Idiopathic pulmonary fibrosis
     Route: 048
     Dates: start: 20190709
  2. OFEV [Suspect]
     Active Substance: NINTEDANIB
     Route: 048

REACTIONS (11)
  - Subdural haematoma [Unknown]
  - Fall [Unknown]
  - Pneumonia [Unknown]
  - Idiopathic pulmonary fibrosis [Unknown]
  - Diarrhoea [Not Recovered/Not Resolved]
  - COVID-19 [Unknown]
  - Epistaxis [Unknown]
  - Haematochezia [Unknown]
  - Syncope [Unknown]
  - Serum ferritin increased [Unknown]
  - Facial bones fracture [Unknown]

NARRATIVE: CASE EVENT DATE: 20190701
